FAERS Safety Report 7994157-3 (Version None)
Quarter: 2011Q4

REPORT INFORMATION
  Report Type: 
  Country: None (occurrence: None)
  Receive Date: 20111220
  Receipt Date: 20111206
  Transmission Date: 20120403
  Serious: Yes (Other)
  Sender: FDA-Public Use
  Company Number: NL-AMGEN-NLDSP2011058265

PATIENT
  Age: 62 Year
  Sex: Female
  Weight: 83 kg

DRUGS (2)
  1. ENBREL [Suspect]
     Indication: RHEUMATOID ARTHRITIS
     Dosage: 50 MG, WEEKLY
     Route: 058
     Dates: start: 20100920, end: 20101026
  2. ENBREL [Suspect]
     Dosage: 25 MG, 2X/WEEK
     Route: 058
     Dates: start: 20101026, end: 20110211

REACTIONS (5)
  - DERMATITIS ALLERGIC [None]
  - SKIN INFECTION [None]
  - BONE PAIN [None]
  - INJECTION SITE RASH [None]
  - MUSCULOSKELETAL DISCOMFORT [None]
